FAERS Safety Report 8268791-X (Version None)
Quarter: 2012Q2

REPORT INFORMATION
  Report Type: 
  Country: None (occurrence: None)
  Receive Date: 20120409
  Receipt Date: 20120409
  Transmission Date: 20120825
  Serious: Yes (Hospitalization)
  Sender: FDA-Public Use
  Company Number: None

PATIENT
  Age: 42 Year
  Sex: Female
  Weight: 77.11 kg

DRUGS (1)
  1. REMICADE [Suspect]
     Indication: CROHN'S DISEASE
     Route: 041
     Dates: start: 20091001, end: 20120227

REACTIONS (12)
  - PERICARDIAL EFFUSION [None]
  - SYSTEMIC LUPUS ERYTHEMATOSUS [None]
  - HEADACHE [None]
  - PYREXIA [None]
  - CARDIAC DISORDER [None]
  - LUNG DISORDER [None]
  - FATIGUE [None]
  - DYSPNOEA [None]
  - CHEST PAIN [None]
  - DIABETES MELLITUS [None]
  - HEART RATE INCREASED [None]
  - PNEUMONITIS [None]
